FAERS Safety Report 13304441 (Version 1)
Quarter: 2017Q1

REPORT INFORMATION
  Report Type: Spontaneous
  Country: CA (occurrence: CA)
  Receive Date: 20170308
  Receipt Date: 20170308
  Transmission Date: 20170428
  Serious: Yes (Life-Threatening, Hospitalization)
  Sender: FDA-Public Use
  Company Number: CA-TEVA-746302ACC

PATIENT
  Age: 82 Year
  Sex: Male
  Weight: 100 kg

DRUGS (16)
  1. COLACE [Concomitant]
     Active Substance: DOCUSATE SODIUM
  2. DEXILANT [Concomitant]
     Active Substance: DEXLANSOPRAZOLE
  3. MEMANTINE. [Concomitant]
     Active Substance: MEMANTINE
  4. VITAMIN B12 [Concomitant]
     Active Substance: CYANOCOBALAMIN
  5. PRAVASTATIN SODIUM. [Concomitant]
     Active Substance: PRAVASTATIN SODIUM
  6. ASA [Concomitant]
     Active Substance: ASPIRIN
  7. AVODART [Concomitant]
     Active Substance: DUTASTERIDE
  8. AMLODIPINE [Concomitant]
     Active Substance: AMLODIPINE BESYLATE
  9. TRIAMTERENE AND HYDROCHLOROTHIAZIDE [Concomitant]
     Active Substance: HYDROCHLOROTHIAZIDE\TRIAMTERENE
  10. NITROGLYCERIN. [Concomitant]
     Active Substance: NITROGLYCERIN
  11. TAMSULOSIN CR [Concomitant]
     Active Substance: TAMSULOSIN
  12. ACEBUTOLOL [Concomitant]
     Active Substance: ACEBUTOLOL
  13. ENALAPRIL [Concomitant]
     Active Substance: ENALAPRIL
  14. FERROUS SULFATE. [Concomitant]
     Active Substance: FERROUS SULFATE
  15. SULFAMETHOXAZOLE\TRIMETHOPRIM [Suspect]
     Active Substance: SULFAMETHOXAZOLE\TRIMETHOPRIM
     Indication: URINARY TRACT INFECTION
     Dosage: 2 DOSAGE FORMS DAILY;
  16. POTASSIUM CHLORIDE. [Concomitant]
     Active Substance: POTASSIUM CHLORIDE

REACTIONS (2)
  - Acute kidney injury [Recovered/Resolved]
  - Hyperkalaemia [Recovered/Resolved]
